FAERS Safety Report 10365412 (Version 1)
Quarter: 2014Q3

REPORT INFORMATION
  Report Type: Spontaneous
  Country: US (occurrence: None)
  Receive Date: 20140805
  Receipt Date: 20140805
  Transmission Date: 20150326
  Serious: Yes (Hospitalization)
  Sender: FDA-Public Use
  Company Number: None

PATIENT
  Age: 74 Year
  Sex: Female
  Weight: 45 kg

DRUGS (15)
  1. CHOLECALCIFEROL [Concomitant]
     Active Substance: CHOLECALCIFEROL
  2. GUAFENESIN [Concomitant]
  3. FUROSEMIDE. [Concomitant]
     Active Substance: FUROSEMIDE
  4. MIRTAZAPINE. [Concomitant]
     Active Substance: MIRTAZAPINE
  5. TEMAZEPAM. [Concomitant]
     Active Substance: TEMAZEPAM
  6. DIGOXIN. [Suspect]
     Active Substance: DIGOXIN
     Indication: ATRIAL FIBRILLATION
     Dosage: 125 MCG ALT WITH 250 MCG
     Route: 048
  7. SIMVASTATIN. [Concomitant]
     Active Substance: SIMVASTATIN
  8. METOPROLOL [Concomitant]
     Active Substance: METOPROLOL
  9. FAMOTIDINE. [Concomitant]
     Active Substance: FAMOTIDINE
  10. ASPIRIN. [Concomitant]
     Active Substance: ASPIRIN
  11. FERROUS SULFATE [Concomitant]
     Active Substance: FERROUS SULFATE\FERROUS SULFATE, DRIED
  12. LISINOPRIL. [Concomitant]
     Active Substance: LISINOPRIL
  13. GLIPIZIDE. [Concomitant]
     Active Substance: GLIPIZIDE
  14. LORAZEPAM. [Concomitant]
     Active Substance: LORAZEPAM
  15. ACETAMINOPHEN. [Concomitant]
     Active Substance: ACETAMINOPHEN

REACTIONS (3)
  - Asthenia [None]
  - Fatigue [None]
  - Bradycardia [None]

NARRATIVE: CASE EVENT DATE: 20140228
